FAERS Safety Report 10730760 (Version 1)
Quarter: 2015Q1

REPORT INFORMATION
  Report Type: Spontaneous
  Country: US (occurrence: None)
  Receive Date: 20150120
  Receipt Date: 20150120
  Transmission Date: 20150721
  Serious: No
  Sender: FDA-Public Use
  Company Number: None

PATIENT
  Age: 20 Year
  Sex: Female
  Weight: 49.9 kg

DRUGS (1)
  1. NEXPLANON [Suspect]
     Active Substance: ETONOGESTREL

REACTIONS (10)
  - Acne [None]
  - Migraine [None]
  - Pruritus [None]
  - Menstrual disorder [None]
  - Abdominal discomfort [None]
  - Fatigue [None]
  - Back pain [None]
  - Asthenia [None]
  - Pain in extremity [None]
  - Dermal cyst [None]
